FAERS Safety Report 24781183 (Version 1)
Quarter: 2024Q4

REPORT INFORMATION
  Report Type: Spontaneous
  Country: US (occurrence: US)
  Receive Date: 20241227
  Receipt Date: 20241227
  Transmission Date: 20250115
  Serious: No
  Sender: CELLTRION
  Company Number: US-CELLTRION INC.-2024US007118

PATIENT

DRUGS (2)
  1. TRUXIMA [Suspect]
     Active Substance: RITUXIMAB-ABBS
     Indication: Myopathy
     Dosage: THE TRUXIMA IS GIVEN AS TWO-1,000 MG INTRAVENOUS
     Route: 042
     Dates: start: 20231103
  2. TRUXIMA [Suspect]
     Active Substance: RITUXIMAB-ABBS
     Dosage: THE TRUXIMA IS GIVEN AS TWO-1,000 MG INTRAVENOUS
     Route: 042
     Dates: start: 20231117

REACTIONS (2)
  - Off label use [Not Recovered/Not Resolved]
  - Therapy non-responder [Unknown]

NARRATIVE: CASE EVENT DATE: 20231103
